FAERS Safety Report 8852275 (Version 1)
Quarter: 2012Q4

REPORT INFORMATION
  Report Type: 
  Country: US (occurrence: US)
  Receive Date: 20121022
  Receipt Date: 20121022
  Transmission Date: 20130627
  Serious: No
  Sender: FDA-Public Use
  Company Number: US-TEVA-363699USA

PATIENT
  Age: 62 Year
  Sex: Male
  Weight: 80.81 kg

DRUGS (3)
  1. QNASL [Suspect]
     Indication: NASAL CONGESTION
     Dosage: 160 mcg daily
     Route: 045
     Dates: start: 20121001, end: 20121008
  2. ASPIRIN [Concomitant]
     Indication: ANTICOAGULANT THERAPY
     Dosage: 81 Milligram Daily;
     Route: 048
  3. MULTIVITAMIN [Concomitant]
     Indication: ROUTINE HEALTH MAINTENANCE
     Dosage: daily
     Route: 048

REACTIONS (2)
  - Pollakiuria [Recovered/Resolved]
  - Hiccups [Recovered/Resolved]
